FAERS Safety Report 9520777 (Version 1)
Quarter: 2013Q3

REPORT INFORMATION
  Report Type: Spontaneous
  Country: US (occurrence: US)
  Receive Date: 20130913
  Receipt Date: 20130913
  Transmission Date: 20140515
  Serious: No
  Sender: FDA-Public Use
  Company Number: US-009507513-1309USA004370

PATIENT
  Sex: Male

DRUGS (1)
  1. DULERA [Suspect]
     Indication: INCREASED UPPER AIRWAY SECRETION
     Dosage: ONCE PUFF TWICE A DAY
     Route: 055

REACTIONS (1)
  - Increased upper airway secretion [Recovering/Resolving]
